FAERS Safety Report 9252650 (Version 1)
Quarter: 2013Q2

REPORT INFORMATION
  Report Type: Spontaneous
  Country: IE (occurrence: IE)
  Receive Date: 20130424
  Receipt Date: 20130424
  Transmission Date: 20140414
  Serious: No
  Sender: FDA-Public Use
  Company Number: IE-GLAXOSMITHKLINE-A1021008A

PATIENT
  Age: 27 Year
  Sex: Female

DRUGS (1)
  1. NEOTIGASON [Suspect]
     Indication: PSORIASIS
     Dosage: 25MG PER DAY
     Route: 064
     Dates: start: 201010, end: 201010

REACTIONS (3)
  - Maternal exposure before pregnancy [Unknown]
  - Pregnancy [Unknown]
  - Live birth [Unknown]
